FAERS Safety Report 5048139-4 (Version None)
Quarter: 2006Q3

REPORT INFORMATION
  Report Type: 
  Country: None (occurrence: None)
  Receive Date: 20060711
  Receipt Date: 20060613
  Transmission Date: 20061208
  Serious: Yes (Hospitalization)
  Sender: FDA-Public Use
  Company Number: 2006UW12887

PATIENT
  Age: 21189 Day
  Sex: Female

DRUGS (8)
  1. CRESTOR [Suspect]
     Indication: HYPERLIPIDAEMIA
     Route: 048
     Dates: start: 20060216, end: 20060316
  2. PIOGLITAZONE HCL [Suspect]
     Indication: DIABETES MELLITUS NON-INSULIN-DEPENDENT
     Route: 048
     Dates: start: 20050207, end: 20050725
  3. ZOLOFT [Concomitant]
     Indication: ANXIETY
     Route: 048
  4. COLACE [Concomitant]
     Indication: ABDOMINAL HERNIA
     Route: 048
  5. ASPIRIN [Concomitant]
     Indication: CARDIOVASCULAR EVENT PROPHYLAXIS
     Route: 048
  6. CARDURA [Concomitant]
     Indication: HYPERTENSION
     Route: 048
  7. HYZAAR [Concomitant]
     Indication: HYPERTENSION
     Route: 048
  8. LIPITOR [Concomitant]
     Indication: HYPERLIPIDAEMIA
     Route: 048
     Dates: start: 20050518, end: 20060215

REACTIONS (1)
  - PULMONARY EMBOLISM [None]
